FAERS Safety Report 4984851-0 (Version None)
Quarter: 2006Q2

REPORT INFORMATION
  Report Type: 
  Country: None (occurrence: None)
  Receive Date: 20060426
  Receipt Date: 20060426
  Transmission Date: 20061013
  Serious: Yes (Life-Threatening)
  Sender: FDA-Public Use
  Company Number: None

PATIENT
  Age: 33 Year
  Sex: Male
  Weight: 109.3169 kg

DRUGS (2)
  1. TAXOTERE [Suspect]
     Indication: HEPATIC CANCER METASTATIC
     Dosage: 176         EVERY 3 WEEKS  IV
     Route: 042
     Dates: start: 20060425
  2. TAXOTERE [Suspect]
     Indication: OESOPHAGEAL CANCER METASTATIC
     Dosage: 176         EVERY 3 WEEKS  IV
     Route: 042
     Dates: start: 20060425

REACTIONS (3)
  - BACK PAIN [None]
  - CHEST PAIN [None]
  - INFUSION RELATED REACTION [None]
